FAERS Safety Report 11720669 (Version 1)
Quarter: 2015Q4

REPORT INFORMATION
  Report Type: Spontaneous
  Country: US (occurrence: US)
  Receive Date: 20151110
  Receipt Date: 20151110
  Transmission Date: 20160304
  Serious: No
  Sender: FDA-Public Use
  Company Number: US-NEPHRON PHARMACEUTICALS CORPORATION-1044026

PATIENT
  Age: 77 Year
  Sex: Female
  Weight: 63.18 kg

DRUGS (1)
  1. ALBUTEROL SULFATE INHALATION SOLUTION, 0.083% [Suspect]
     Active Substance: ALBUTEROL SULFATE
     Indication: BRONCHITIS
     Route: 055
     Dates: start: 20150416, end: 20150416

REACTIONS (1)
  - Sputum discoloured [Recovered/Resolved]

NARRATIVE: CASE EVENT DATE: 20150417
